FAERS Safety Report 6590065-3 (Version None)
Quarter: 2010Q1

REPORT INFORMATION
  Report Type: 
  Country: None (occurrence: None)
  Receive Date: 20100219
  Receipt Date: 20100215
  Transmission Date: 20100710
  Serious: Yes (Death, Hospitalization)
  Sender: FDA-Public Use
  Company Number: PHHY2010JP08677

PATIENT
  Age: 83 Year
  Sex: Male

DRUGS (3)
  1. ZOMETA [Suspect]
     Indication: METASTASES TO BONE
     Dosage: 4 MG, UNK
     Route: 041
     Dates: start: 20090708, end: 20090708
  2. OMEPRAL [Concomitant]
     Dosage: 20 MG, UNK
     Dates: start: 20090626
  3. CALBLOCK [Concomitant]
     Dosage: 16 MG, UNK
     Dates: start: 20090626

REACTIONS (2)
  - LUNG NEOPLASM MALIGNANT [None]
  - OSTEONECROSIS [None]
